FAERS Safety Report 5085417-7 (Version None)
Quarter: 2006Q3

REPORT INFORMATION
  Report Type: 
  Country: None (occurrence: None)
  Receive Date: 20060816
  Receipt Date: 20060811
  Transmission Date: 20061208
  Serious: Yes (Life-Threatening)
  Sender: FDA-Public Use
  Company Number: 2006P1000310

PATIENT
  Age: 78 Year
  Sex: Male
  Weight: 80 kg

DRUGS (23)
  1. RETEPLASE (RETEPLASE) [Suspect]
     Indication: ACUTE MYOCARDIAL INFARCTION
     Dosage: IV
     Route: 042
     Dates: start: 20060508
  2. REOPRO [Suspect]
     Indication: ACUTE MYOCARDIAL INFARCTION
     Dosage: IV
     Route: 042
     Dates: start: 20060508
  3. NITROGLYCERIN [Concomitant]
  4. DOPAMINE [Concomitant]
  5. HEPARIN [Concomitant]
  6. VASOCARDIN [Concomitant]
  7. ASPIRIN [Concomitant]
  8. FENTANYL [Concomitant]
  9. RANITIDINE [Concomitant]
  10. ISOKET [Concomitant]
  11. INSULIN [Concomitant]
  12. ASPARTATE POTASSIUM [Concomitant]
  13. MAGNESIUM ASPARTATE [Concomitant]
  14. METHYLPREDNISOLONE [Concomitant]
  15. EPHEDRINE [Concomitant]
  16. FUROSEMIDE [Concomitant]
  17. ESOMEPRAZOLE MAGNESIUM [Concomitant]
  18. CEFUROXIME [Concomitant]
  19. PANCURONIUM BROMIDE [Concomitant]
  20. ISOSORBIDE DINITRATE [Concomitant]
  21. ASPIRIN [Concomitant]
  22. METOPROLOL TARTRATE [Concomitant]
  23. GLYCERYL TRINITRATE [Concomitant]

REACTIONS (38)
  - ACTIVATED PARTIAL THROMBOPLASTIN TIME PROLONGED [None]
  - ACUTE RESPIRATORY DISTRESS SYNDROME [None]
  - ALANINE AMINOTRANSFERASE DECREASED [None]
  - ALANINE AMINOTRANSFERASE INCREASED [None]
  - ARRHYTHMIA [None]
  - ARTERIAL HAEMORRHAGE [None]
  - ASPARTATE AMINOTRANSFERASE INCREASED [None]
  - BILIRUBIN CONJUGATED INCREASED [None]
  - BLOOD BILIRUBIN INCREASED [None]
  - BRADYCARDIA [None]
  - CARDIAC ARREST [None]
  - CARDIAC FAILURE [None]
  - CEREBRAL ATROPHY [None]
  - CORONARY ARTERY STENOSIS [None]
  - DEPRESSED LEVEL OF CONSCIOUSNESS [None]
  - EROSIVE DUODENITIS [None]
  - EXTRAVASATION [None]
  - GASTRITIS EROSIVE [None]
  - GASTRODUODENITIS [None]
  - HAEMODIALYSIS [None]
  - HAEMOGLOBIN DECREASED [None]
  - HYPERTHERMIA [None]
  - HYPOTENSION [None]
  - HYPOXIC ENCEPHALOPATHY [None]
  - IATROGENIC INJURY [None]
  - LUNG DISORDER [None]
  - NERVOUS SYSTEM DISORDER [None]
  - OLIGURIA [None]
  - PCO2 DECREASED [None]
  - PERICARDIAL HAEMORRHAGE [None]
  - PO2 DECREASED [None]
  - REFLUX OESOPHAGITIS [None]
  - RESPIRATORY DISTRESS [None]
  - RESPIRATORY FAILURE [None]
  - TACHYCARDIA [None]
  - URINARY NITROGEN INCREASED [None]
  - VARICES OESOPHAGEAL [None]
  - VENTRICULAR FIBRILLATION [None]
